FAERS Safety Report 10206881 (Version 3)
Quarter: 2014Q3

REPORT INFORMATION
  Report Type: Spontaneous
  Country: US (occurrence: US)
  Receive Date: 20140530
  Receipt Date: 20140711
  Transmission Date: 20150326
  Serious: Yes (Death, Hospitalization, Disabling, Other)
  Sender: FDA-Public Use
  Company Number: US-009507513-1204USA01361

PATIENT
  Sex: Female
  Weight: 65.31 kg

DRUGS (3)
  1. FOSAMAX [Suspect]
     Active Substance: ALENDRONATE SODIUM
     Dosage: 70 MG, UNK
     Route: 048
     Dates: start: 20020620, end: 200606
  2. ALENDRONATE SODIUM. [Suspect]
     Active Substance: ALENDRONATE SODIUM
     Indication: OSTEOPENIA
     Dosage: UNK
     Route: 048
     Dates: start: 1996, end: 200607
  3. FOSAMAX [Suspect]
     Active Substance: ALENDRONATE SODIUM
     Indication: OSTEOPOROSIS
     Dosage: 10 MG, UNK
     Route: 048
     Dates: start: 1996, end: 20020620

REACTIONS (29)
  - Injury [Unknown]
  - Trigger finger [Unknown]
  - Femur fracture [Recovering/Resolving]
  - Metastases to lymph nodes [Unknown]
  - Pancytopenia [Unknown]
  - Vitamin D deficiency [Unknown]
  - Intramedullary rod insertion [Unknown]
  - Radiotherapy to breast [Unknown]
  - Stapedectomy [Unknown]
  - Myelodysplastic syndrome [Unknown]
  - Invasive lobular breast carcinoma [Unknown]
  - Intramedullary rod insertion [Unknown]
  - Constipation [Unknown]
  - Femur fracture [Not Recovered/Not Resolved]
  - Hyperlipidaemia [Unknown]
  - Primary hypothyroidism [Unknown]
  - Hypotension [Unknown]
  - Kyphosis [Unknown]
  - Anaemia postoperative [Unknown]
  - Death [Fatal]
  - Breast lump removal [Unknown]
  - Ovarian operation [Unknown]
  - Blood alkaline phosphatase decreased [Unknown]
  - Low turnover osteopathy [Not Recovered/Not Resolved]
  - Adverse event [Unknown]
  - Excoriation [Unknown]
  - Normochromic normocytic anaemia [Unknown]
  - Renal cyst [Unknown]
  - Otosclerosis [Unknown]

NARRATIVE: CASE EVENT DATE: 1996
